FAERS Safety Report 6892357 (Version 2)
Quarter: 2020Q3

REPORT INFORMATION
  Report Type: Report from Study
  Country: US (occurrence: US)
  Receive Date: 20090126
  Receipt Date: 20090930
  Transmission Date: 20201104
  Serious: Yes (Hospitalization)
  Sender: FDA-Public Use
  Company Number: US-JNJFOC-20090100988

PATIENT
  Age: 72 Year
  Sex: Female
  Weight: 59.1 kg

DRUGS (22)
  1. TAPENTADOL HYDROCHLORIDE [Suspect]
     Active Substance: TAPENTADOL HYDROCHLORIDE
     Route: 048
  2. VIVELLE [Concomitant]
     Active Substance: ESTRADIOL
     Route: 065
  3. LIDOCAINE VISCOUS [Concomitant]
     Active Substance: LIDOCAINE HYDROCHLORIDE
     Route: 065
  4. DARVOCET?N 100 [Concomitant]
     Active Substance: ACETAMINOPHEN\PROPOXYPHENE NAPSYLATE
     Route: 065
  5. PRILOSEC [Concomitant]
     Active Substance: OMEPRAZOLE MAGNESIUM
     Route: 065
  6. LASIX [Concomitant]
     Active Substance: FUROSEMIDE
     Route: 065
  7. MACRODANTIN [Concomitant]
     Active Substance: NITROFURANTOIN
     Route: 065
  8. DILAUDID [Concomitant]
     Active Substance: HYDROMORPHONE HYDROCHLORIDE
     Route: 065
  9. NEURONTIN [Concomitant]
     Active Substance: GABAPENTIN
     Route: 065
  10. MAALOX ANTACID [Concomitant]
     Active Substance: ALUMINUM HYDROXIDE\DIMETHICONE\MAGNESIUM HYDROXIDE
     Route: 065
  11. FENTANYL. [Suspect]
     Active Substance: FENTANYL
     Indication: PAIN
     Route: 062
  12. PROMETHAZINE [Concomitant]
     Active Substance: PROMETHAZINE HYDROCHLORIDE
     Route: 065
  13. SENOKOT [Concomitant]
     Active Substance: SENNOSIDES
     Route: 065
  14. PROTONIX [Concomitant]
     Active Substance: PANTOPRAZOLE SODIUM
     Route: 065
  15. TAPENTADOL HYDROCHLORIDE [Suspect]
     Active Substance: TAPENTADOL HYDROCHLORIDE
     Indication: PAIN
     Route: 048
  16. METOPROLOL. [Concomitant]
     Active Substance: METOPROLOL
     Route: 065
  17. NITROGLYCERIN. [Concomitant]
     Active Substance: NITROGLYCERIN
     Route: 065
  18. OXYCODONE [Concomitant]
     Active Substance: OXYCODONE
     Route: 065
  19. GLIPIZIDE. [Concomitant]
     Active Substance: GLIPIZIDE
     Route: 065
  20. MIRALAX [Concomitant]
     Active Substance: POLYETHYLENE GLYCOL 3350
     Route: 065
  21. DONNATAL [Concomitant]
     Active Substance: ATROPINE SULFATE\HYOSCYAMINE SULFATE\PHENOBARBITAL\SCOPOLAMINE HYDROBROMIDE
     Route: 065
  22. MORPHINE [Concomitant]
     Active Substance: MORPHINE
     Route: 065

REACTIONS (4)
  - Urinary tract infection [Recovered/Resolved]
  - Mental status changes [Recovered/Resolved]
  - Hypovolaemia [Recovered/Resolved]
  - Chest pain [Recovered/Resolved]

NARRATIVE: CASE EVENT DATE: 20070929
